FAERS Safety Report 8729722 (Version 9)
Quarter: 2014Q2

REPORT INFORMATION
  Report Type: Report from Study
  Country: CA (occurrence: CA)
  Receive Date: 20120817
  Receipt Date: 20140527
  Transmission Date: 20141212
  Serious: Yes (Hospitalization, Other)
  Sender: FDA-Public Use
  Company Number: CA-ROCHE-1090531

PATIENT
  Age: 45 Year
  Sex: Male

DRUGS (5)
  1. ZELBORAF [Suspect]
     Indication: METASTATIC MALIGNANT MELANOMA
     Route: 048
     Dates: start: 20120711, end: 20120804
  2. ZELBORAF [Suspect]
     Route: 048
     Dates: start: 201209
  3. ZELBORAF [Suspect]
     Route: 048
  4. PANTOLOC [Concomitant]
  5. SYNTHROID [Concomitant]
     Route: 065

REACTIONS (7)
  - Syncope [Unknown]
  - Urinary tract infection [Unknown]
  - Sunburn [Not Recovered/Not Resolved]
  - Hypotension [Unknown]
  - Nausea [Unknown]
  - Fatigue [Recovered/Resolved]
  - Arthralgia [Not Recovered/Not Resolved]
